FAERS Safety Report 6094192-9 (Version None)
Quarter: 2009Q1

REPORT INFORMATION
  Report Type: 
  Country: None (occurrence: None)
  Receive Date: 20090226
  Receipt Date: 20090218
  Transmission Date: 20090719
  Serious: Yes (Life-Threatening, Other)
  Sender: FDA-Public Use
  Company Number: IL-ASTRAZENECA-2009AC00590

PATIENT
  Age: 7 Year
  Sex: Female
  Weight: 15 kg

DRUGS (3)
  1. LIDOCAINE HYDROCHLORIDE [Suspect]
     Dosage: 2% LIDOCAINE AND 1:100000 ADRENALINE
     Route: 045
  2. SEVOFLURANE [Concomitant]
     Indication: INDUCTION AND MAINTENANCE OF ANAESTHESIA
  3. FENTANYL [Concomitant]
     Indication: INDUCTION AND MAINTENANCE OF ANAESTHESIA

REACTIONS (10)
  - ACUTE RESPIRATORY DISTRESS SYNDROME [None]
  - BRAIN STEM HAEMORRHAGE [None]
  - FACIAL PALSY [None]
  - HEMIPARESIS [None]
  - HYPOTENSION [None]
  - LEUKOPENIA [None]
  - NYSTAGMUS [None]
  - PULMONARY FIBROSIS [None]
  - PYREXIA [None]
  - RESPIRATORY FAILURE [None]
